FAERS Safety Report 11549529 (Version 1)
Quarter: 2015Q3

REPORT INFORMATION
  Report Type: Spontaneous
  Country: US (occurrence: US)
  Receive Date: 20150924
  Receipt Date: 20150924
  Transmission Date: 20151125
  Serious: No
  Sender: FDA-Public Use
  Company Number: US-INCYTE CORPORATION-2015IN003456

PATIENT
  Sex: Male

DRUGS (13)
  1. JAKAFI [Suspect]
     Active Substance: RUXOLITINIB
     Dosage: 20 MG, BID
     Route: 048
     Dates: start: 20141125
  2. ANDROXY [Concomitant]
     Active Substance: FLUOXYMESTERONE
  3. IRON [Concomitant]
     Active Substance: IRON
  4. HYDROCODONE [Concomitant]
     Active Substance: HYDROCODONE
  5. AMLODIPINE [Concomitant]
     Active Substance: AMLODIPINE BESYLATE
  6. FOLIC ACID. [Concomitant]
     Active Substance: FOLIC ACID
  7. VITAMIN B12 [Concomitant]
     Active Substance: CYANOCOBALAMIN
  8. LASIX [Concomitant]
     Active Substance: FUROSEMIDE
  9. LEVOTHYROXINE. [Concomitant]
     Active Substance: LEVOTHYROXINE
  10. LACTULOSE. [Concomitant]
     Active Substance: LACTULOSE
  11. ASPIRIN. [Concomitant]
     Active Substance: ASPIRIN
  12. PRILOSEC [Concomitant]
     Active Substance: OMEPRAZOLE MAGNESIUM
  13. METOPROLOL [Concomitant]
     Active Substance: METOPROLOL

REACTIONS (4)
  - Somnolence [Unknown]
  - Malaise [Unknown]
  - Nervousness [Unknown]
  - Drug administration error [Unknown]
